FAERS Safety Report 5918767-X (Version None)
Quarter: 2008Q3

REPORT INFORMATION
  Report Type: 
  Country: None (occurrence: None)
  Receive Date: 20080909
  Receipt Date: 20070816
  Transmission Date: 20090109
  Serious: Yes (Hospitalization)
  Sender: FDA-Public Use
  Company Number: 163-20785-07080003

PATIENT
  Sex: Female

DRUGS (1)
  1. THALOMID [Suspect]
     Indication: MULTIPLE MYELOMA
     Dosage: 50 MG X 28 DAYS, ORAL
     Route: 048
     Dates: start: 20070514

REACTIONS (4)
  - ANXIETY [None]
  - DYSPNOEA [None]
  - INSOMNIA [None]
  - PNEUMONIA [None]
